FAERS Safety Report 18859972 (Version 1)
Quarter: 2021Q1

REPORT INFORMATION
  Report Type: Spontaneous
  Country: FR (occurrence: FR)
  Receive Date: 20210208
  Receipt Date: 20210208
  Transmission Date: 20210420
  Serious: Yes (Other)
  Sender: FDA-Public Use
  Company Number: FR-BAUSCH-BL-2021-004782

PATIENT
  Age: 81 Year
  Sex: Male
  Weight: 84 kg

DRUGS (12)
  1. DEXAMETHASONE. [Suspect]
     Active Substance: DEXAMETHASONE
     Dosage: QCY
     Route: 048
     Dates: start: 20201123, end: 20201123
  2. DIGOXIN. [Suspect]
     Active Substance: DIGOXIN
     Indication: ATRIAL FIBRILLATION
     Route: 042
     Dates: start: 20201113, end: 20201118
  3. ENDOXAN [Suspect]
     Active Substance: CYCLOPHOSPHAMIDE
     Indication: PLASMA CELL MYELOMA
     Dosage: 1 DF TOTAL
     Route: 042
     Dates: start: 20201022, end: 20201022
  4. AUGMENTIN [Suspect]
     Active Substance: AMOXICILLIN\CLAVULANATE POTASSIUM
     Indication: PROPHYLAXIS
     Route: 048
     Dates: start: 20201116, end: 20201124
  5. REVLIMID [Suspect]
     Active Substance: LENALIDOMIDE
     Indication: PLASMA CELL MYELOMA
     Dosage: 21J/28
     Route: 048
     Dates: start: 20201113, end: 20201204
  6. VELCADE [Suspect]
     Active Substance: BORTEZOMIB
     Dosage: (J1 ? J4 ? J8 ? J11), QCY;
     Route: 042
     Dates: start: 20201123, end: 20201123
  7. ISOSORBIDE DINITRATE. [Suspect]
     Active Substance: ISOSORBIDE DINITRATE
     Indication: ACUTE PULMONARY OEDEMA
     Route: 042
     Dates: start: 20201115, end: 20201123
  8. RAMIPRIL. [Suspect]
     Active Substance: RAMIPRIL
     Indication: HYPERTENSION
     Route: 048
     Dates: start: 20201117, end: 20201205
  9. VELCADE [Suspect]
     Active Substance: BORTEZOMIB
     Indication: PLASMA CELL MYELOMA
     Dosage: (J1 ? J4 ? J8 ? J11)
     Route: 042
     Dates: start: 20201113, end: 20201113
  10. FUROSEMIDE. [Suspect]
     Active Substance: FUROSEMIDE
     Indication: ACUTE PULMONARY OEDEMA
     Route: 048
     Dates: start: 20201113, end: 20201205
  11. DIGITOXIN [Suspect]
     Active Substance: DIGITOXIN
     Indication: ATRIAL FIBRILLATION
     Route: 048
     Dates: start: 20201121, end: 20201205
  12. DEXAMETHASONE. [Suspect]
     Active Substance: DEXAMETHASONE
     Indication: PLASMA CELL MYELOMA
     Dosage: J1 ? J4 ? J8 ? J11
     Route: 048
     Dates: start: 20201113, end: 20201113

REACTIONS (3)
  - Somnolence [Recovered/Resolved]
  - Condition aggravated [Recovered/Resolved]
  - Asthenia [Recovered/Resolved]
